FAERS Safety Report 18735136 (Version 1)
Quarter: 2021Q1

REPORT INFORMATION
  Report Type: Spontaneous
  Country: AU (occurrence: AU)
  Receive Date: 20210113
  Receipt Date: 20210113
  Transmission Date: 20210419
  Serious: Yes (Other)
  Sender: FDA-Public Use
  Company Number: NVSC2021AU004304

PATIENT
  Sex: Male

DRUGS (2)
  1. CILOXAN [Suspect]
     Active Substance: CIPROFLOXACIN HYDROCHLORIDE
     Indication: LABYRINTHITIS
     Dosage: UNK
     Route: 065
     Dates: start: 20210103
  2. CILOXAN [Suspect]
     Active Substance: CIPROFLOXACIN HYDROCHLORIDE
     Indication: TYMPANIC MEMBRANE PERFORATION
     Dosage: UNK
     Route: 065
     Dates: end: 20201231

REACTIONS (8)
  - Hypoaesthesia [Unknown]
  - Excessive cerumen production [Unknown]
  - Ear swelling [Unknown]
  - Ear infection fungal [Unknown]
  - Ear discomfort [Unknown]
  - Otorrhoea [Unknown]
  - Labyrinthitis [Unknown]
  - Tympanic membrane hyperaemia [Unknown]
